FAERS Safety Report 11129521 (Version 1)
Quarter: 2015Q2

REPORT INFORMATION
  Report Type: Spontaneous
  Country: US (occurrence: US)
  Receive Date: 20150521
  Receipt Date: 20150521
  Transmission Date: 20150821
  Serious: No
  Sender: FDA-Public Use
  Company Number: US-MYLANLABS-2015M1004673

PATIENT
  Sex: Female

DRUGS (1)
  1. ESTRADIOL TABLETS, USP [Suspect]
     Active Substance: ESTRADIOL
     Indication: OESTROGEN THERAPY
     Dosage: 1 MG, QD
     Route: 048
     Dates: start: 20150201

REACTIONS (3)
  - Gastrointestinal pain [Recovering/Resolving]
  - Migraine [Recovering/Resolving]
  - Reaction to drug excipients [Recovering/Resolving]

NARRATIVE: CASE EVENT DATE: 20150202
